FAERS Safety Report 6197951-7 (Version None)
Quarter: 2009Q2

REPORT INFORMATION
  Report Type: 
  Country: None (occurrence: None)
  Receive Date: 20090521
  Receipt Date: 20090514
  Transmission Date: 20091009
  Serious: Yes (Hospitalization)
  Sender: FDA-Public Use
  Company Number: B0570361A

PATIENT
  Sex: Female

DRUGS (5)
  1. SERETIDE [Suspect]
     Indication: WHEEZING
     Route: 055
     Dates: start: 20090413
  2. DASEN [Concomitant]
     Indication: PRODUCTIVE COUGH
     Route: 048
     Dates: start: 20090413
  3. THEOLONG [Concomitant]
     Indication: ASTHMA
     Route: 048
     Dates: start: 20090413
  4. NEOPHYLLIN INJECTION [Concomitant]
     Indication: ASTHMA
     Dosage: 10ML PER DAY
     Route: 042
     Dates: start: 20090413
  5. RINDERON [Concomitant]
     Indication: ASTHMA
     Dosage: 4MG PER DAY
     Route: 042
     Dates: start: 20090413

REACTIONS (8)
  - BLOOD PRESSURE INCREASED [None]
  - DIZZINESS [None]
  - FEELING ABNORMAL [None]
  - HYPERTENSIVE ENCEPHALOPATHY [None]
  - HYPOAESTHESIA [None]
  - MALAISE [None]
  - PALPITATIONS [None]
  - TREMOR [None]
